FAERS Safety Report 7809760-0 (Version None)
Quarter: 2011Q4

REPORT INFORMATION
  Report Type: 
  Country: None (occurrence: None)
  Receive Date: 20111012
  Receipt Date: 20111004
  Transmission Date: 20120403
  Serious: Yes (Other)
  Sender: FDA-Public Use
  Company Number: PHEH2011US01852

PATIENT
  Sex: Female
  Weight: 75 kg

DRUGS (4)
  1. GILENYA [Suspect]
     Indication: MULTIPLE SCLEROSIS
     Dosage: 0.5 MG, QD
     Route: 048
     Dates: start: 20110701, end: 20110925
  2. ZANAFLEX [Concomitant]
     Indication: MUSCLE SPASMS
     Dosage: 2 MG, QHS
     Route: 048
  3. VITAMIN TAB [Concomitant]
     Dosage: UNK UKN, OT
     Route: 048
  4. GABAPENTIN [Concomitant]
     Indication: PAIN
     Dosage: 600 MG, UNK
     Route: 048

REACTIONS (10)
  - FATIGUE [None]
  - HEADACHE [None]
  - HYPERSOMNIA [None]
  - COGNITIVE DISORDER [None]
  - MALAISE [None]
  - FEELING ABNORMAL [None]
  - VISUAL IMPAIRMENT [None]
  - DIZZINESS [None]
  - DYSPNOEA [None]
  - HYPERTENSION [None]
